FAERS Safety Report 4586617-2 (Version None)
Quarter: 2005Q1

REPORT INFORMATION
  Report Type: 
  Country: None (occurrence: None)
  Receive Date: 20050218
  Receipt Date: 20040713
  Transmission Date: 20050727
  Serious: Yes (Life-Threatening)
  Sender: FDA-Public Use
  Company Number: US-BRISTOL-MYERS SQUIBB COMPANY-12641387

PATIENT
  Age: 36 Year
  Sex: Female

DRUGS (5)
  1. TAXOL [Suspect]
     Indication: OVARIAN CANCER
     Dosage: APPROXIMATELY.
     Route: 042
     Dates: start: 20040712, end: 20040712
  2. BENADRYL [Concomitant]
     Indication: PREMEDICATION
     Route: 042
     Dates: start: 20040712, end: 20040712
  3. TAGAMET [Concomitant]
     Indication: PREMEDICATION
     Route: 042
     Dates: start: 20040712, end: 20040712
  4. DEXAMETHASONE [Concomitant]
     Indication: PREMEDICATION
     Route: 042
     Dates: start: 20040712, end: 20040712
  5. KYTRIL [Concomitant]
     Indication: PREMEDICATION
     Dosage: INTRAVENOUS PUSH (IVP)
     Route: 040
     Dates: start: 20040712, end: 20040712

REACTIONS (1)
  - HYPERSENSITIVITY [None]
